FAERS Safety Report 10633969 (Version 2)
Quarter: 2014Q4

REPORT INFORMATION
  Report Type: Spontaneous
  Country: GB (occurrence: GB)
  Receive Date: 20141205
  Receipt Date: 20141230
  Transmission Date: 20150529
  Serious: Yes (Hospitalization, Other)
  Sender: FDA-Public Use
  Company Number: GB-BAYER-2014-178903

PATIENT
  Age: 74 Year
  Sex: Male
  Weight: 85 kg

DRUGS (2)
  1. GADOVIST 1.0 MMOL/ML SOLUTION FOR INJECTION [Suspect]
     Active Substance: GADOBUTROL
     Indication: PROSTATE CANCER
     Dosage: 9 ML, ONCE
     Route: 042
     Dates: start: 20141126, end: 20141126
  2. GADOVIST 1.0 MMOL/ML SOLUTION FOR INJECTION [Suspect]
     Active Substance: GADOBUTROL
     Indication: NUCLEAR MAGNETIC RESONANCE IMAGING

REACTIONS (10)
  - Myocardial infarction [None]
  - Heart rate increased [None]
  - Seizure [None]
  - Blood pressure decreased [None]
  - Throat tightness [None]
  - Dizziness [None]
  - Muscle rigidity [None]
  - Loss of consciousness [None]
  - Chest pain [None]
  - Rash [None]

NARRATIVE: CASE EVENT DATE: 201411
